FAERS Safety Report 20565072 (Version 2)
Quarter: 2022Q1

REPORT INFORMATION
  Report Type: Report from Study
  Country: EG (occurrence: EG)
  Receive Date: 20220308
  Receipt Date: 20220309
  Transmission Date: 20220423
  Serious: Yes (Other)
  Sender: FDA-Public Use
  Company Number: EG-NOVARTISPH-NVSC2022EG049285

PATIENT
  Sex: Male

DRUGS (14)
  1. ENTRESTO [Suspect]
     Active Substance: SACUBITRIL\VALSARTAN
     Indication: Cardiac failure
     Dosage: 1 DOSAGE FORM, BID
     Route: 048
     Dates: start: 20190101, end: 201903
  2. ENTRESTO [Suspect]
     Active Substance: SACUBITRIL\VALSARTAN
     Dosage: 1 DOSAGE FORM, QD
     Route: 048
     Dates: start: 201907, end: 201912
  3. ENTRESTO [Suspect]
     Active Substance: SACUBITRIL\VALSARTAN
     Dosage: 1 DOSAGE FORM, QD
     Route: 048
     Dates: start: 202001
  4. ENTRESTO [Suspect]
     Active Substance: SACUBITRIL\VALSARTAN
     Dosage: 1 DOSAGE FORM, BID
     Route: 048
     Dates: start: 202106
  5. SPECTONE [Concomitant]
     Indication: Renal disorder prophylaxis
     Dosage: 100 MG, QD (4 YEARS AGO AND STOP 2 MONTH AGO) (STRENGTH: 100 MG)
     Route: 065
  6. SPECTONE [Concomitant]
     Dosage: 25 MG, QD (STRENGTH: 25 MG)(2 MONTHS AGO STARTED AND STILL ONGOING)
     Route: 065
  7. ASPIRIN [Concomitant]
     Active Substance: ASPIRIN
     Indication: Thrombosis prophylaxis
     Dosage: 1 DOSAGE FORM, QD
     Route: 065
     Dates: start: 2019
  8. NITROMACK [Concomitant]
     Indication: Cardiac failure
     Dosage: 1 DOSAGE FORM, BID, 5 YEARS AGO
     Route: 065
  9. DAPAGLIFLOZIN [Concomitant]
     Active Substance: DAPAGLIFLOZIN
     Indication: Diabetes prophylaxis
     Dosage: 1 DOSAGE FORM, QD, 6 MONTH AGO
     Route: 065
  10. CORDARONE [Concomitant]
     Active Substance: AMIODARONE HYDROCHLORIDE
     Indication: Cardiac failure
     Dosage: 1 DOSAGE FORM, QD (STRATED 5 YEARS AGO)
     Route: 065
     Dates: end: 2019
  11. CORDARONE [Concomitant]
     Active Substance: AMIODARONE HYDROCHLORIDE
     Dosage: 1 DOSAGE FORM, QD
     Route: 065
  12. CANDESAR [Concomitant]
     Indication: Cardiac failure
     Dosage: 1 DOSAGE FORM, QD
     Route: 065
  13. LANOXIN [Concomitant]
     Active Substance: DIGOXIN
     Indication: Cardiac failure
     Dosage: 1 DOSAGE FORM, QD
     Route: 065
     Dates: start: 2019
  14. MARIVANIL [Concomitant]
     Indication: Prophylaxis
     Dosage: 1 DOSAGE FORM, QD, 2 YEARS AGO
     Route: 065

REACTIONS (11)
  - Fluid retention [Recovered/Resolved]
  - Pericardial effusion [Recovered/Resolved]
  - Insomnia [Recovered/Resolved]
  - Drug tolerance [Recovered/Resolved]
  - Heart rate irregular [Recovering/Resolving]
  - Fatigue [Recovering/Resolving]
  - Cough [Recovered/Resolved]
  - Cardiomyopathy [Recovering/Resolving]
  - Ejection fraction decreased [Recovering/Resolving]
  - Poor peripheral circulation [Recovering/Resolving]
  - Product use issue [Recovered/Resolved]

NARRATIVE: CASE EVENT DATE: 20190101
